FAERS Safety Report 18410785 (Version 2)
Quarter: 2020Q4

REPORT INFORMATION
  Report Type: Spontaneous
  Country: US (occurrence: US)
  Receive Date: 20201021
  Receipt Date: 20201110
  Transmission Date: 20210114
  Serious: Yes (Hospitalization, Other)
  Sender: FDA-Public Use
  Company Number: US-STRONGBRIDGE BIOPHARMA-2020-STR-000258

PATIENT
  Age: 55 Year
  Sex: Female

DRUGS (2)
  1. KEVEYIS [Suspect]
     Active Substance: DICHLORPHENAMIDE
     Indication: FAMILIAL PERIODIC PARALYSIS
     Dosage: 50 MG, QD
     Route: 048
     Dates: start: 20200502
  2. KEVEYIS [Suspect]
     Active Substance: DICHLORPHENAMIDE
     Dosage: 50 MG, BID
     Route: 048

REACTIONS (4)
  - Condition aggravated [Recovering/Resolving]
  - Loss of consciousness [Recovering/Resolving]
  - Blood potassium decreased [Recovered/Resolved]
  - Muscle rigidity [Recovering/Resolving]

NARRATIVE: CASE EVENT DATE: 20201023
